FAERS Safety Report 18705712 (Version 1)
Quarter: 2021Q1

REPORT INFORMATION
  Report Type: Spontaneous
  Country: CA (occurrence: CA)
  Receive Date: 20210106
  Receipt Date: 20210106
  Transmission Date: 20210419
  Serious: Yes (Other)
  Sender: FDA-Public Use
  Company Number: CA-TEVA-2020-CA-1864754

PATIENT
  Sex: Female

DRUGS (2)
  1. PREDNISONE. [Suspect]
     Active Substance: PREDNISONE
     Route: 065
  2. SALOFALK (MESALAZINE) [Suspect]
     Active Substance: MESALAMINE
     Route: 065

REACTIONS (2)
  - Drug ineffective [Unknown]
  - Steroid dependence [Unknown]
